FAERS Safety Report 19084644 (Version 1)
Quarter: 2021Q2

REPORT INFORMATION
  Report Type: Spontaneous
  Country: US (occurrence: US)
  Receive Date: 20210401
  Receipt Date: 20210401
  Transmission Date: 20210717
  Serious: No
  Sender: FDA-Public Use
  Company Number: US-IBSA PHARMA-2020-IBS-00770

PATIENT
  Age: 84 Year

DRUGS (2)
  1. FLECTOR [Suspect]
     Active Substance: DICLOFENAC EPOLAMINE
     Route: 061
  2. CELEBREX [Suspect]
     Active Substance: CELECOXIB
     Indication: POLYARTHRITIS
     Dosage: 100 MILLIGRAM, BID
     Route: 048

REACTIONS (1)
  - Malaise [Unknown]
